FAERS Safety Report 9840202 (Version 1)
Quarter: 2013Q4

REPORT INFORMATION
  Report Type: Spontaneous
  Country: US (occurrence: None)
  Receive Date: 20131223
  Receipt Date: 20131223
  Transmission Date: 20140711
  Serious: No
  Sender: FDA-Public Use
  Company Number: 219408LEO

PATIENT
  Age: 64 Year
  Sex: Female

DRUGS (1)
  1. PICATO (0.015%, GEL) [Suspect]
     Indication: PHOTOSENSITIVITY REACTION
     Dates: start: 20121027, end: 20121029

REACTIONS (6)
  - Application site erythema [None]
  - Paraesthesia [None]
  - Application site paraesthesia [None]
  - Application site swelling [None]
  - Application site warmth [None]
  - Application site burn [None]
